FAERS Safety Report 25602261 (Version 1)
Quarter: 2025Q3

REPORT INFORMATION
  Report Type: Spontaneous
  Country: US (occurrence: None)
  Receive Date: 20250724
  Receipt Date: 20250724
  Transmission Date: 20251020
  Serious: Yes (Death)
  Sender: FDA-CTU
  Company Number: None

PATIENT
  Age: 84 Year
  Sex: Male
  Weight: 91.2 kg

DRUGS (19)
  1. POMALYST [Suspect]
     Active Substance: POMALIDOMIDE
     Indication: Plasma cell myeloma
     Route: 048
  2. AMLODIPINE [Concomitant]
     Active Substance: AMLODIPINE BESYLATE
  3. METFORMIN [Concomitant]
     Active Substance: METFORMIN HYDROCHLORIDE
  4. ACYCLOVIR [Concomitant]
     Active Substance: ACYCLOVIR
  5. ELIQUIS [Concomitant]
     Active Substance: APIXABAN
  6. DARZALEX [Concomitant]
     Active Substance: DARATUMUMAB
  7. CITALOPRAM [Concomitant]
     Active Substance: CITALOPRAM
  8. DEXAMETHASONE [Concomitant]
     Active Substance: DEXAMETHASONE
  9. SENNA [Concomitant]
     Active Substance: SENNOSIDES
  10. LORAZEPAM [Concomitant]
     Active Substance: LORAZEPAM
  11. MYRBETRIQ [Concomitant]
     Active Substance: MIRABEGRON
  12. naorpxen [Concomitant]
  13. OMEPRAZOLE [Concomitant]
     Active Substance: OMEPRAZOLE
  14. OXYCODONE [Concomitant]
     Active Substance: OXYCODONE
  15. PRAVASTATIN [Concomitant]
     Active Substance: PRAVASTATIN
  16. TAMSULOSIN [Concomitant]
     Active Substance: TAMSULOSIN
  17. TOLTERODINE [Concomitant]
     Active Substance: TOLTERODINE
  18. SANCTURA [Concomitant]
     Active Substance: TROSPIUM CHLORIDE
  19. IRON [Concomitant]
     Active Substance: IRON

REACTIONS (1)
  - Death [None]
